FAERS Safety Report 6864065-X (Version None)
Quarter: 2010Q3

REPORT INFORMATION
  Report Type: 
  Country: None (occurrence: None)
  Receive Date: 20100721
  Receipt Date: 20080519
  Transmission Date: 20110219
  Serious: No
  Sender: FDA-Public Use
  Company Number: US-PFIZER INC-2008024180

PATIENT
  Sex: Female
  Weight: 83.2 kg

DRUGS (9)
  1. CHANTIX [Suspect]
     Indication: SMOKING CESSATION THERAPY
     Route: 048
     Dates: start: 20080302
  2. HYOSCYAMINE [Concomitant]
     Route: 048
  3. LOPRESSOR [Concomitant]
     Route: 048
  4. SIMVASTATIN [Concomitant]
     Route: 048
  5. MOBIC [Concomitant]
     Route: 048
  6. PREMARIN [Concomitant]
     Route: 048
  7. BENAZEPRIL HYDROCHLORIDE [Concomitant]
     Route: 048
  8. OMEPRAZOLE [Concomitant]
     Route: 048
  9. HYDROCHLOROTHIAZIDE [Concomitant]

REACTIONS (5)
  - ARTHRALGIA [None]
  - ARTHROPATHY [None]
  - DIZZINESS [None]
  - MALAISE [None]
  - NAUSEA [None]
